FAERS Safety Report 17477799 (Version 3)
Quarter: 2021Q3

REPORT INFORMATION
  Report Type: Spontaneous
  Country: JP (occurrence: JP)
  Receive Date: 20200228
  Receipt Date: 20210803
  Transmission Date: 20211014
  Serious: Yes (Hospitalization, Other)
  Sender: FDA-Public Use
  Company Number: JP-ASTRAZENECA-2020SE02972

PATIENT
  Age: 24077 Day
  Sex: Female
  Weight: 37 kg

DRUGS (4)
  1. DENOTAS [Concomitant]
     Active Substance: CALCIUM CARBONATE\CHOLECALCIFEROL\MAGNESIUM CARBONATE
     Indication: NON-SMALL CELL LUNG CANCER
     Route: 048
     Dates: start: 20170203, end: 20200102
  2. IRESSA [Suspect]
     Active Substance: GEFITINIB
     Indication: NON-SMALL CELL LUNG CANCER
     Route: 048
     Dates: start: 20160601, end: 20160810
  3. TAGRISSO [Suspect]
     Active Substance: OSIMERTINIB
     Indication: NON-SMALL CELL LUNG CANCER
     Route: 048
     Dates: start: 20190402, end: 20200102
  4. TAKECAB [Concomitant]
     Active Substance: VONOPRAZAN FUMARATE
     Indication: GASTRIC ULCER
     Route: 048
     Dates: start: 20190318, end: 20200102

REACTIONS (10)
  - Oropharyngeal pain [Unknown]
  - Rhinorrhoea [Unknown]
  - Torsade de pointes [Recovering/Resolving]
  - Cardiac failure acute [Recovering/Resolving]
  - Hepatic function abnormal [Unknown]
  - Urinary tract infection [Unknown]
  - Ventricular tachycardia [Unknown]
  - Electrocardiogram QT prolonged [Unknown]
  - Cardiomyopathy [Recovering/Resolving]
  - Sleep disorder due to general medical condition, insomnia type [Unknown]

NARRATIVE: CASE EVENT DATE: 20160810
